FAERS Safety Report 19725101 (Version 1)
Quarter: 2021Q3

REPORT INFORMATION
  Report Type: Spontaneous
  Country: US (occurrence: US)
  Receive Date: 20210819
  Receipt Date: 20210819
  Transmission Date: 20211014
  Serious: No
  Sender: FDA-Public Use
  Company Number: None

PATIENT
  Age: 34 Year
  Sex: Female
  Weight: 95 kg

DRUGS (1)
  1. REMDESIVIR. [Suspect]
     Active Substance: REMDESIVIR
     Route: 042

REACTIONS (7)
  - COVID-19 pneumonia [None]
  - Septic shock [None]
  - Cardiac arrest [None]
  - Acute respiratory failure [None]
  - Alanine aminotransferase increased [None]
  - Aspartate aminotransferase increased [None]
  - Blood creatinine increased [None]

NARRATIVE: CASE EVENT DATE: 20210816
